FAERS Safety Report 4305898-3 (Version None)
Quarter: 2004Q1

REPORT INFORMATION
  Report Type: 
  Country: None (occurrence: None)
  Receive Date: 20040226
  Receipt Date: 20031118
  Transmission Date: 20041129
  Serious: Yes (Hospitalization, Disabling, Other)
  Sender: FDA-Public Use
  Company Number: WAES 0311USA02115

PATIENT
  Age: 51 Year
  Sex: Male
  Weight: 109 kg

DRUGS (6)
  1. FLEXERIL [Concomitant]
  2. MONOPRIL [Concomitant]
     Indication: HYPERTENSION
  3. PRAVACHOL [Concomitant]
     Indication: HYPERCHOLESTEROLAEMIA
     Dates: end: 20021122
  4. VIOXX [Suspect]
     Indication: SCIATICA
     Route: 048
     Dates: start: 20020109
  5. VIOXX [Suspect]
     Route: 048
     Dates: start: 20020101, end: 20020128
  6. VIOXX [Suspect]
     Dates: start: 20020109, end: 20020109

REACTIONS (22)
  - ACUTE MYOCARDIAL INFARCTION [None]
  - ATHEROSCLEROSIS [None]
  - BLOOD GLUCOSE INCREASED [None]
  - BLOOD PRESSURE SYSTOLIC INCREASED [None]
  - CARPAL TUNNEL SYNDROME [None]
  - CORONARY ARTERY ATHEROSCLEROSIS [None]
  - CORONARY ARTERY OCCLUSION [None]
  - DERMOID CYST [None]
  - DIABETES MELLITUS NON-INSULIN-DEPENDENT [None]
  - EMOTIONAL DISTRESS [None]
  - ERUCTATION [None]
  - HYPERSENSITIVITY [None]
  - LYME DISEASE [None]
  - NERVE COMPRESSION [None]
  - OVERDOSE [None]
  - PAIN IN EXTREMITY [None]
  - POLYTRAUMATISM [None]
  - SINUS BRADYCARDIA [None]
  - TENDONITIS [None]
  - TRIGGER FINGER [None]
  - WEIGHT DECREASED [None]
  - WHITE BLOOD CELL COUNT INCREASED [None]
